FAERS Safety Report 18100078 (Version 4)
Quarter: 2020Q4

REPORT INFORMATION
  Report Type: Spontaneous
  Country: CN (occurrence: CN)
  Receive Date: 20200731
  Receipt Date: 20201016
  Transmission Date: 20210113
  Serious: Yes (Hospitalization, Other)
  Sender: FDA-Public Use
  Company Number: CN-VIIV HEALTHCARE LIMITED-CN2020APC139585

PATIENT

DRUGS (3)
  1. TIVICAY [Suspect]
     Active Substance: DOLUTEGRAVIR SODIUM
     Indication: HIV INFECTION
     Dosage: 1 DF, QD, TABLET, 50 MG
     Route: 048
     Dates: start: 20200722
  2. ZIDOVUDINE. [Suspect]
     Active Substance: ZIDOVUDINE
     Indication: HIV INFECTION
     Dosage: 1 DF(TABLET), BID
     Dates: start: 20200722
  3. LAMIVUDINE. [Suspect]
     Active Substance: LAMIVUDINE
     Indication: HIV INFECTION
     Dosage: UNK
     Dates: start: 20200722

REACTIONS (22)
  - Pain [Unknown]
  - Decreased appetite [Unknown]
  - Pneumonitis [Unknown]
  - Pneumonia [Unknown]
  - Sputum culture positive [Unknown]
  - Headache [Unknown]
  - Pyrexia [Unknown]
  - Marasmus [Recovering/Resolving]
  - Weight increased [Unknown]
  - Sputum increased [Unknown]
  - Muscular weakness [Not Recovered/Not Resolved]
  - Treatment noncompliance [Unknown]
  - Drug ineffective [Unknown]
  - Back pain [Unknown]
  - Hypotension [Unknown]
  - Asthenia [Unknown]
  - Lung disorder [Unknown]
  - Viral load increased [Unknown]
  - Dysuria [Recovered/Resolved]
  - Dry mouth [Not Recovered/Not Resolved]
  - Prostatitis [Unknown]
  - Flatulence [Unknown]

NARRATIVE: CASE EVENT DATE: 20200722
